FAERS Safety Report 12140184 (Version 1)
Quarter: 2016Q1

REPORT INFORMATION
  Report Type: Spontaneous
  Country: US (occurrence: None)
  Receive Date: 20160302
  Receipt Date: 20160302
  Transmission Date: 20160526
  Serious: Yes (Other)
  Sender: FDA-Public Use
  Company Number: None

PATIENT
  Age: 71 Year
  Sex: Female
  Weight: 77.11 kg

DRUGS (1)
  1. PROLIA [Suspect]
     Active Substance: DENOSUMAB
     Indication: OSTEOPOROSIS
     Dosage: ? Q6MONTHS SQ
     Route: 058
     Dates: start: 20140626, end: 20141229

REACTIONS (5)
  - Injection site pain [None]
  - Muscle spasms [None]
  - Bursitis [None]
  - Gait disturbance [None]
  - Device difficult to use [None]

NARRATIVE: CASE EVENT DATE: 201502
